FAERS Safety Report 8312225-3 (Version None)
Quarter: 2012Q2

REPORT INFORMATION
  Report Type: 
  Country: None (occurrence: None)
  Receive Date: 20120425
  Receipt Date: 20120412
  Transmission Date: 20120825
  Serious: Yes (Other)
  Sender: FDA-Public Use
  Company Number: CHPA2012US009298

PATIENT
  Age: 58 Year
  Sex: Female

DRUGS (3)
  1. EXCEDRIN EXTRA STRENGTH TABLETS [Suspect]
     Dosage: UNK, UNK
     Route: 048
     Dates: start: 19700101, end: 20050101
  2. EXTRA STRENGTH TYLENOL [Concomitant]
     Dosage: 1 DF, Q6H
     Dates: start: 20000101
  3. ASPIRIN [Concomitant]
     Dosage: 1 DF, Q6H
     Dates: start: 20000101

REACTIONS (1)
  - MULTIPLE SCLEROSIS [None]
